FAERS Safety Report 20812256 (Version 1)
Quarter: 2022Q2

REPORT INFORMATION
  Report Type: Spontaneous
  Country: US (occurrence: US)
  Receive Date: 20220511
  Receipt Date: 20220511
  Transmission Date: 20220721
  Serious: Yes (Other)
  Sender: FDA-Public Use
  Company Number: US-JNJFOC-20220515272

PATIENT
  Age: 83 Year
  Sex: Female

DRUGS (3)
  1. XARELTO [Suspect]
     Active Substance: RIVAROXABAN
     Indication: Product used for unknown indication
     Route: 048
  2. IBRUTINIB [Suspect]
     Active Substance: IBRUTINIB
     Indication: Chronic lymphocytic leukaemia
     Route: 048
     Dates: start: 202106
  3. IBRUTINIB [Suspect]
     Active Substance: IBRUTINIB
     Indication: Lymphocytic lymphoma

REACTIONS (4)
  - Atrial fibrillation [Unknown]
  - Oedema peripheral [Unknown]
  - Joint swelling [Unknown]
  - Contusion [Not Recovered/Not Resolved]
